FAERS Safety Report 17700148 (Version 1)
Quarter: 2020Q2

REPORT INFORMATION
  Report Type: Report from Study
  Country: US (occurrence: US)
  Receive Date: 20200423
  Receipt Date: 20200423
  Transmission Date: 20200714
  Serious: Yes (Death)
  Sender: FDA-Public Use
  Company Number: US-ACTELION-A-NJ2018-169182

PATIENT
  Age: 80 Year
  Sex: Female

DRUGS (2)
  1. NIFEDIPINE. [Concomitant]
     Active Substance: NIFEDIPINE
  2. OPSUMIT [Suspect]
     Active Substance: MACITENTAN
     Indication: PULMONARY ARTERIAL HYPERTENSION
     Dosage: 10 MG, QD
     Route: 048
     Dates: start: 20140311

REACTIONS (13)
  - Hypertonic bladder [Unknown]
  - Condition aggravated [Unknown]
  - Hypoacusis [Unknown]
  - Death [Fatal]
  - Infection [Unknown]
  - Gastrointestinal disorder [Unknown]
  - Depression [Unknown]
  - Anxiety [Unknown]
  - Diarrhoea [Unknown]
  - Scleroderma [Unknown]
  - Raynaud^s phenomenon [Unknown]
  - Oxygen consumption increased [Unknown]
  - Stress [Unknown]

NARRATIVE: CASE EVENT DATE: 201803
